FAERS Safety Report 8493723-9 (Version None)
Quarter: 2012Q3

REPORT INFORMATION
  Report Type: 
  Country: None (occurrence: None)
  Receive Date: 20120706
  Receipt Date: 20120626
  Transmission Date: 20120928
  Serious: Yes (Other)
  Sender: FDA-Public Use
  Company Number: US-ELI_LILLY_AND_COMPANY-US201206001907

PATIENT
  Sex: Female
  Weight: 123 kg

DRUGS (15)
  1. BYDUREON [Suspect]
     Indication: TYPE 2 DIABETES MELLITUS
     Dosage: 2 MG, WEEKLY (1/W)
     Route: 058
     Dates: start: 20120527, end: 20120606
  2. GLUCOTROL [Concomitant]
     Dosage: 10 MG, QD
     Route: 048
     Dates: start: 20111026
  3. SINGULAIR [Concomitant]
     Dosage: 10 MG, QD
     Route: 048
     Dates: start: 20110825
  4. ADVAIR DISKUS 100/50 [Concomitant]
     Dosage: 1 DF, BID
     Route: 055
     Dates: start: 20120604
  5. ALLEGRA [Concomitant]
     Dosage: 180 MG, QD
     Route: 048
     Dates: start: 20100527
  6. LOVAZA [Concomitant]
     Dosage: 1000 MG, BID
     Route: 048
     Dates: start: 20111006
  7. SIMVASTATIN [Concomitant]
     Dosage: 10 MG, EACH EVENING
     Route: 048
     Dates: start: 20120507
  8. CALCIUM CARBONATE [Concomitant]
     Dosage: 600 MG, UNK
     Route: 048
  9. MULTI-VITAMIN [Concomitant]
     Dosage: UNK, QD
     Route: 048
  10. ACIPHEX [Concomitant]
     Dosage: 20 MG, QD
     Route: 048
     Dates: start: 20120305
  11. METFORMIN HYDROCHLORIDE [Concomitant]
     Dosage: 1000 MG, BID
     Route: 048
     Dates: start: 20120517
  12. VITAMIN D [Concomitant]
     Dosage: 1000 U, QD
     Route: 048
  13. LISINOPRIL                              /USA/ [Concomitant]
     Dosage: 5 MG, QD
     Route: 048
     Dates: start: 20120430
  14. NIASPAN [Concomitant]
     Dosage: 500 MG, EACH EVENING
     Route: 048
     Dates: start: 20120125
  15. PAXIL [Concomitant]
     Dosage: 20 MG, EACH EVENING
     Route: 048
     Dates: start: 20120411

REACTIONS (7)
  - INJECTION SITE SWELLING [None]
  - INJECTION SITE ERYTHEMA [None]
  - INJECTION SITE DISCOLOURATION [None]
  - INJECTION SITE CELLULITIS [None]
  - INJECTION SITE NODULE [None]
  - INJECTION SITE WARMTH [None]
  - INJECTION SITE PAIN [None]
